FAERS Safety Report 10914107 (Version 1)
Quarter: 2015Q1

REPORT INFORMATION
  Report Type: Spontaneous
  Country: BE (occurrence: BE)
  Receive Date: 20150313
  Receipt Date: 20150313
  Transmission Date: 20150721
  Serious: Yes (Death, Hospitalization, Other)
  Sender: FDA-Public Use
  Company Number: BE-ALKERMES INC.-ALK-2015-004318

PATIENT

DRUGS (2)
  1. VERAPAMIL HCL EXTENDED-RELEASE CAPSULE [Suspect]
     Active Substance: VERAPAMIL HYDROCHLORIDE
     Indication: PRODUCT USED FOR UNKNOWN INDICATION
     Dosage: UNK
  2. VENLAFAXIN [Suspect]
     Active Substance: VENLAFAXINE HYDROCHLORIDE
     Indication: PRODUCT USED FOR UNKNOWN INDICATION
     Dosage: UNK

REACTIONS (11)
  - Hepatic necrosis [Unknown]
  - Seizure [Unknown]
  - Acute kidney injury [Unknown]
  - Acute hepatic failure [Unknown]
  - Cardiogenic shock [Unknown]
  - Gastrointestinal necrosis [Fatal]
  - Renal tubular necrosis [Not Recovered/Not Resolved]
  - Mydriasis [Unknown]
  - Acute respiratory distress syndrome [Unknown]
  - Coma scale abnormal [Unknown]
  - Atrioventricular block second degree [Recovering/Resolving]
